FAERS Safety Report 5897550-8 (Version None)
Quarter: 2008Q3

REPORT INFORMATION
  Report Type: 
  Country: None (occurrence: None)
  Receive Date: 20080925
  Receipt Date: 20080916
  Transmission Date: 20090109
  Serious: Yes (Hospitalization)
  Sender: FDA-Public Use
  Company Number: US-BAYER-200833872NA

PATIENT
  Age: 15 Year
  Sex: Female
  Weight: 23 kg

DRUGS (5)
  1. CAMPATH [Suspect]
     Indication: RENAL TRANSPLANT
     Dosage: TOTAL DAILY DOSE: 6.3 MG
     Route: 042
     Dates: start: 20050712, end: 20050712
  2. CAMPATH [Suspect]
     Dosage: TOTAL DAILY DOSE: 6.3 MG
     Route: 042
     Dates: start: 20050714, end: 20050714
  3. IRON POLYSACCHARIDE [Concomitant]
     Dates: start: 20051025, end: 20051026
  4. MAGNESIUM SULFATE [Concomitant]
     Dates: start: 20050720, end: 20051108
  5. CALCITRIOL [Concomitant]
     Dates: start: 20051025, end: 20061003

REACTIONS (1)
  - DEHYDRATION [None]
